FAERS Safety Report 6612156-0 (Version None)
Quarter: 2010Q1

REPORT INFORMATION
  Report Type: 
  Country: None (occurrence: None)
  Receive Date: 20100303
  Receipt Date: 20100223
  Transmission Date: 20100710
  Serious: Yes (Hospitalization, Other)
  Sender: FDA-Public Use
  Company Number: US-AMGEN-QUU394468

PATIENT
  Sex: Female

DRUGS (4)
  1. NPLATE [Suspect]
     Indication: IDIOPATHIC THROMBOCYTOPENIC PURPURA
     Dates: start: 20090901
  2. SENNA [Concomitant]
  3. PROTONIX [Concomitant]
  4. IMMU-G [Concomitant]
     Route: 042

REACTIONS (4)
  - DEEP VEIN THROMBOSIS [None]
  - PETECHIAE [None]
  - PLATELET COUNT ABNORMAL [None]
  - RENAL FAILURE [None]
